FAERS Safety Report 6774563-5 (Version None)
Quarter: 2010Q2

REPORT INFORMATION
  Report Type: 
  Country: None (occurrence: None)
  Receive Date: 20100617
  Receipt Date: 20100607
  Transmission Date: 20101027
  Serious: Yes (Other)
  Sender: FDA-Public Use
  Company Number: BR-JNJCH-2010013964

PATIENT
  Sex: Female

DRUGS (1)
  1. LISTERINE [Suspect]
     Indication: DENTAL DISORDER PROPHYLAXIS
     Dosage: TEXT:UNSPECIFIED, TWICE A DAY
     Route: 048

REACTIONS (2)
  - NODULE [None]
  - TONGUE NEOPLASM [None]
